FAERS Safety Report 6709381-7 (Version None)
Quarter: 2010Q2

REPORT INFORMATION
  Report Type: 
  Country: None (occurrence: None)
  Receive Date: 20100504
  Receipt Date: 20100423
  Transmission Date: 20101027
  Serious: Yes (Other)
  Sender: FDA-Public Use
  Company Number: PHHY2010JP25762

PATIENT

DRUGS (1)
  1. SANDOSTATIN [Suspect]
     Route: 058

REACTIONS (1)
  - HEPATIC ENCEPHALOPATHY [None]
